FAERS Safety Report 8300752-4 (Version None)
Quarter: 2012Q2

REPORT INFORMATION
  Report Type: 
  Country: None (occurrence: None)
  Receive Date: 20120420
  Receipt Date: 20120417
  Transmission Date: 20120825
  Serious: Yes (Life-Threatening, Other)
  Sender: FDA-Public Use
  Company Number: PHEH2011US00996

PATIENT
  Sex: Female

DRUGS (6)
  1. RECLAST [Suspect]
     Route: 042
  2. GLUCOSAMINE W/CHONDROITIN [Concomitant]
     Dosage: UNK UKN, UNK
  3. HYDROCHLOROTHIAZIDE [Concomitant]
     Dosage: UNK UKN, UNK
  4. ASPIRIN [Concomitant]
     Dosage: UNK UKN, ONCE A DAY
  5. VITAMIN E [Concomitant]
     Dosage: UNK UKN, UNK
  6. CALCIUM [Concomitant]
     Dosage: UNK UKN, UNK

REACTIONS (13)
  - FEELING ABNORMAL [None]
  - PAIN [None]
  - MALAISE [None]
  - EYE INFLAMMATION [None]
  - INFLUENZA LIKE ILLNESS [None]
  - HYPERHIDROSIS [None]
  - BONE PAIN [None]
  - GAIT DISTURBANCE [None]
  - OCULAR HYPERAEMIA [None]
  - EYE PAIN [None]
  - NASOPHARYNGITIS [None]
  - MYALGIA [None]
  - TREMOR [None]
